FAERS Safety Report 24812342 (Version 1)
Quarter: 2025Q1

REPORT INFORMATION
  Report Type: Spontaneous
  Country: US (occurrence: US)
  Receive Date: 20250106
  Receipt Date: 20250106
  Transmission Date: 20250409
  Serious: No
  Sender: BIOGEN
  Company Number: US-BIOGEN-2025BI01295833

PATIENT
  Age: 49 Year
  Sex: Female

DRUGS (1)
  1. SPINRAZA [Suspect]
     Active Substance: NUSINERSEN
     Indication: Product used for unknown indication
     Route: 050
     Dates: start: 20181116

REACTIONS (1)
  - Headache [Unknown]

NARRATIVE: CASE EVENT DATE: 20250101
